FAERS Safety Report 11929960 (Version 3)
Quarter: 2016Q2

REPORT INFORMATION
  Report Type: Spontaneous
  Country: US (occurrence: US)
  Receive Date: 20160120
  Receipt Date: 20160415
  Transmission Date: 20160815
  Serious: Yes (Hospitalization, Other)
  Sender: FDA-Public Use
  Company Number: US-AMGEN-USASP2016004347

PATIENT
  Age: 87 Year
  Sex: Female
  Weight: 62.59 kg

DRUGS (2)
  1. PROLIA [Suspect]
     Active Substance: DENOSUMAB
     Indication: OSTEOPOROSIS POSTMENOPAUSAL
     Dosage: 60 MG, Q6MO
     Route: 058
     Dates: start: 20140710
  2. PROLIA [Suspect]
     Active Substance: DENOSUMAB
     Dosage: UNK
     Route: 058

REACTIONS (8)
  - Fall [Unknown]
  - Femur fracture [Unknown]
  - Pneumonia [Unknown]
  - Drug dose omission [Unknown]
  - Papule [Recovered/Resolved]
  - Asthenia [Unknown]
  - Knee arthroplasty [Unknown]
  - Hip fracture [Unknown]

NARRATIVE: CASE EVENT DATE: 20141211
